FAERS Safety Report 11982747 (Version 3)
Quarter: 2016Q1

REPORT INFORMATION
  Report Type: Spontaneous
  Country: DE (occurrence: DE)
  Receive Date: 20160201
  Receipt Date: 20160323
  Transmission Date: 20160526
  Serious: Yes (Hospitalization)
  Sender: FDA-Public Use
  Company Number: DE-BAYER-2016-018424

PATIENT
  Age: 32 Year
  Sex: Female
  Weight: 58 kg

DRUGS (4)
  1. DESOGESTREL [Concomitant]
     Active Substance: DESOGESTREL
     Indication: CONTRACEPTION
     Dosage: UNK
     Route: 048
     Dates: start: 201504
  2. LORAZEPAM. [Concomitant]
     Active Substance: LORAZEPAM
     Indication: PHOBIA OF FLYING
     Dosage: UNK
  3. YASMIN [Suspect]
     Active Substance: DROSPIRENONE\ETHINYL ESTRADIOL
     Indication: CONTRACEPTION
     Dosage: UNK
     Route: 048
     Dates: start: 201205, end: 201504
  4. YASMIN [Suspect]
     Active Substance: DROSPIRENONE\ETHINYL ESTRADIOL
     Indication: CONTRACEPTION
     Dosage: UNK
     Route: 048
     Dates: start: 200611, end: 201104

REACTIONS (28)
  - Hemianaesthesia [Recovered/Resolved]
  - Obsessive thoughts [Recovered/Resolved]
  - Anxiety [Recovered/Resolved]
  - Depression [Recovered/Resolved]
  - Headache [Recovered/Resolved]
  - Depressed mood [Recovered/Resolved]
  - Hyperreflexia [None]
  - Constipation [None]
  - Decreased interest [Recovered/Resolved]
  - Depression [Recovered/Resolved]
  - Lethargy [Recovered/Resolved]
  - Obsessive-compulsive disorder [Recovered/Resolved]
  - Discomfort [Recovered/Resolved]
  - Pain in extremity [Recovered/Resolved]
  - Central nervous system lesion [Not Recovered/Not Resolved]
  - Pneumonia [Recovered/Resolved]
  - Anorexia nervosa [None]
  - Diarrhoea [Recovered/Resolved]
  - Speech disorder [Recovered/Resolved]
  - Asthenia [Recovered/Resolved]
  - Body temperature increased [Recovered/Resolved]
  - Hypoaesthesia [None]
  - Muscular weakness [None]
  - Cerebral haemorrhage [Recovered/Resolved]
  - Liver function test increased [Recovered/Resolved]
  - Thrombocytosis [Recovered/Resolved]
  - Migraine [Recovered/Resolved]
  - Personality disorder [Recovered/Resolved]

NARRATIVE: CASE EVENT DATE: 2011
